FAERS Safety Report 8218963-5 (Version None)
Quarter: 2012Q1

REPORT INFORMATION
  Report Type: 
  Country: None (occurrence: None)
  Receive Date: 20120319
  Receipt Date: 20120313
  Transmission Date: 20120608
  Serious: Yes (Life-Threatening, Hospitalization)
  Sender: FDA-Public Use
  Company Number: US-MERCK-1203USA01738

PATIENT
  Age: 40 Year
  Sex: Male

DRUGS (4)
  1. XOLAIR [Concomitant]
     Route: 065
  2. SINGULAIR [Suspect]
     Indication: HYPERSENSITIVITY
     Route: 048
     Dates: start: 20070101
  3. ADVAIR DISKUS 100/50 [Concomitant]
     Route: 065
  4. SINGULAIR [Suspect]
     Indication: ASTHMA
     Route: 048
     Dates: start: 20070101

REACTIONS (1)
  - ALLERGIC GRANULOMATOUS ANGIITIS [None]
